FAERS Safety Report 9063785 (Version 1)
Quarter: 2013Q1

REPORT INFORMATION
  Report Type: Spontaneous
  Country: US (occurrence: US)
  Receive Date: 20130131
  Receipt Date: 20130131
  Transmission Date: 20140127
  Serious: Yes (Death, Life-Threatening, Other)
  Sender: FDA-Public Use
  Company Number: US-RB-044123-12

PATIENT
  Age: 27 Year
  Sex: Female

DRUGS (5)
  1. BUPRENORPHINE NOS [Suspect]
     Indication: PRODUCT USED FOR UNKNOWN INDICATION
     Dosage: DOSE DETAILS NOT PROVIDED
     Route: 051
  2. THC [Suspect]
     Indication: PRODUCT USED FOR UNKNOWN INDICATION
     Dosage: DOSE DETAILS NOT PROVIDED
     Route: 065
  3. METHADONE [Suspect]
     Indication: PRODUCT USED FOR UNKNOWN INDICATION
     Dosage: DOSE DETAILS NOT PROVIDED
     Route: 065
  4. OTHER STIMULANT/STREET DRUG [Suspect]
     Indication: PRODUCT USED FOR UNKNOWN INDICATION
     Dosage: DOSING INFORMATION UNKNOWN
  5. OTHER STIMULANT/STREET DRUG [Suspect]
     Indication: PRODUCT USED FOR UNKNOWN INDICATION
     Dosage: DOSING INFORMATION UNKNOWN

REACTIONS (7)
  - Completed suicide [Fatal]
  - Coma [Fatal]
  - Cardiac arrest [Fatal]
  - Respiratory arrest [Fatal]
  - Drug abuse [Fatal]
  - Intentional drug misuse [Fatal]
  - Gastrointestinal haemorrhage [Fatal]
